FAERS Safety Report 12256280 (Version 3)
Quarter: 2017Q1

REPORT INFORMATION
  Report Type: Spontaneous
  Country: US (occurrence: US)
  Receive Date: 20160412
  Receipt Date: 20170123
  Transmission Date: 20170428
  Serious: No
  Sender: FDA-Public Use
  Company Number: US-PFIZER INC-2016177464

PATIENT
  Age: 61 Year
  Sex: Female

DRUGS (1)
  1. IBRANCE [Suspect]
     Active Substance: PALBOCICLIB
     Dosage: 125 MG, UNK
     Dates: start: 201603

REACTIONS (3)
  - Urinary tract infection [Unknown]
  - Fatigue [Unknown]
  - Tumour marker increased [Unknown]

NARRATIVE: CASE EVENT DATE: 201603
